FAERS Safety Report 9100088 (Version 1)
Quarter: 2013Q1

REPORT INFORMATION
  Report Type: Other
  Country: IT (occurrence: IT)
  Receive Date: 20130215
  Receipt Date: 20130215
  Transmission Date: 20140127
  Serious: Yes (Other)
  Sender: FDA-Public Use
  Company Number: IT-BRISTOL-MYERS SQUIBB COMPANY-17347451

PATIENT
  Age: 14 Year
  Sex: Male

DRUGS (4)
  1. CISPLATIN [Suspect]
     Indication: BONE SARCOMA
  2. METHOTREXATE [Suspect]
     Indication: BONE SARCOMA
     Dosage: 1 DF = 12G/KG
  3. DOXORUBICIN [Suspect]
     Indication: BONE SARCOMA
  4. BACILLUS CALMETTE-GUERIN [Suspect]
     Indication: BONE SARCOMA
     Route: 023

REACTIONS (1)
  - Cutaneous tuberculosis [Unknown]
